FAERS Safety Report 9363498 (Version 3)
Quarter: 2013Q3

REPORT INFORMATION
  Report Type: Spontaneous
  Country: JP (occurrence: JP)
  Receive Date: 20130624
  Receipt Date: 20130729
  Transmission Date: 20140515
  Serious: Yes (Hospitalization)
  Sender: FDA-Public Use
  Company Number: JP-ELI_LILLY_AND_COMPANY-JP201306004239

PATIENT
  Age: 36 Year
  Sex: Female
  Weight: 66 kg

DRUGS (7)
  1. ZYPREXA [Suspect]
     Indication: SCHIZOPHRENIA
     Dosage: 10 MG, QD
     Route: 030
     Dates: start: 20130526, end: 20130526
  2. ZYPREXA [Suspect]
     Indication: SCHIZOPHRENIA
     Dosage: 5 MG, QD
     Dates: start: 20031217
  3. ZYPREXA [Suspect]
     Dosage: 20 MG, QD
     Route: 048
     Dates: start: 20060106, end: 20130525
  4. ZYPREXA [Suspect]
     Dosage: 25 MG, QD
     Route: 048
     Dates: start: 20130526, end: 20130530
  5. DEPAKENE-R [Concomitant]
     Indication: SCHIZOPHRENIA
     Dosage: 600 MG, QD
     Route: 048
     Dates: start: 20130517, end: 20130530
  6. BENZALIN [Concomitant]
     Indication: SCHIZOPHRENIA
     Dosage: 10 MG, QD
     Route: 048
     Dates: start: 20130415, end: 20130530
  7. CARBAMAZEPINE [Concomitant]
     Dosage: 200 MG, QD
     Route: 048
     Dates: start: 20060106, end: 20130517

REACTIONS (3)
  - Neuroleptic malignant syndrome [Recovered/Resolved]
  - Schizophrenia [Unknown]
  - Drug ineffective [Unknown]
